FAERS Safety Report 18125371 (Version 1)
Quarter: 2020Q3

REPORT INFORMATION
  Report Type: Spontaneous
  Country: GB (occurrence: GB)
  Receive Date: 20200807
  Receipt Date: 20200807
  Transmission Date: 20201103
  Serious: Yes (Hospitalization)
  Sender: FDA-Public Use
  Company Number: GB-PERRIGO-20GB010877

PATIENT
  Age: 45 Year
  Sex: Female
  Weight: 65 kg

DRUGS (15)
  1. DESOGESTREL [Concomitant]
     Active Substance: DESOGESTREL
  2. FOSTAIR [Concomitant]
     Active Substance: BECLOMETHASONE\FORMOTEROL
  3. FLUOXETINE HYDROCHLORIDE. [Suspect]
     Active Substance: FLUOXETINE HYDROCHLORIDE
     Indication: PRODUCT USED FOR UNKNOWN INDICATION
     Dosage: 20 MG, QD
     Route: 048
     Dates: start: 20200612, end: 20200708
  4. PREDNISOLONE. [Concomitant]
     Active Substance: PREDNISOLONE
  5. ASCORBIC ACID. [Concomitant]
     Active Substance: ASCORBIC ACID
  6. CETIRIZINE HYDROCHLORIDE. [Suspect]
     Active Substance: CETIRIZINE HYDROCHLORIDE
     Indication: PRODUCT USED FOR UNKNOWN INDICATION
     Dosage: 10 MG, QD
     Route: 048
     Dates: start: 20200612, end: 20200708
  7. SALBUTAMOL [Concomitant]
     Active Substance: ALBUTEROL
  8. TIOTROPIUM BROMIDE [Concomitant]
     Active Substance: TIOTROPIUM BROMIDE
  9. GLUCOSAMINE HYDROCHLORIDE [Concomitant]
     Active Substance: GLUCOSAMINE HYDROCHLORIDE
  10. CALCIUM + VIT D [Concomitant]
     Active Substance: CALCIUM\VITAMIN D
  11. OENOTHERA BIENNIS [Concomitant]
     Active Substance: OENOTHERA BIENNIS
  12. MONTELUKAST SODIUM. [Concomitant]
     Active Substance: MONTELUKAST SODIUM
  13. CICLESONIDE [Concomitant]
     Active Substance: CICLESONIDE
  14. CARBOCISTEINE [Concomitant]
     Active Substance: CARBOCYSTEINE
  15. VITAMIN B COMPLEX [Concomitant]
     Active Substance: CYANOCOBALAMIN\DEXPANTHENOL\NIACINAMIDE\PYRIDOXINE HYDROCHLORIDE\RIBOFLAVIN 5^-PHOSPHATE SODIUM\THIAMINE HYDROCHLORIDE\VITAMIN B COMPLEX

REACTIONS (1)
  - Reversible cerebral vasoconstriction syndrome [Recovering/Resolving]

NARRATIVE: CASE EVENT DATE: 20200612
